FAERS Safety Report 8660748 (Version 3)
Quarter: 2012Q4

REPORT INFORMATION
  Report Type: Spontaneous
  Country: US (occurrence: None)
  Receive Date: 20120626
  Receipt Date: 20121012
  Transmission Date: 20130627
  Serious: Yes (Hospitalization, Other)
  Sender: FDA-Public Use
  Company Number: 2011MA007914

PATIENT
  Sex: Female
  Weight: 115.67 kg

DRUGS (22)
  1. METOCLOPRAMIDE [Suspect]
     Indication: GASTROOESOPHAGEAL REFLUX DISEASE
     Route: 048
     Dates: start: 1992, end: 20010715
  2. BACLOFEN [Concomitant]
  3. NAPROXEN [Concomitant]
  4. TYLENOL WITH CODEINE [Concomitant]
  5. COLACE [Concomitant]
  6. VITAMIN D [Concomitant]
  7. BOTOX [Concomitant]
  8. DIAZEPAM [Concomitant]
  9. HYDROCODONE BITARTRATE + ACETAMINOPHEN [Concomitant]
  10. SULFAMETHOXAZOLE AND TRIMETHOPRIM DOUBLE STRENGTH [Concomitant]
  11. OXYCODONE HYDROCHLORIDE [Concomitant]
  12. FENTANYL [Concomitant]
  13. DICLOFENAC [Concomitant]
  14. LYRICA [Concomitant]
  15. BENADRYL [Concomitant]
  16. ADDERALL [Concomitant]
  17. DEXEDRINE [Concomitant]
  18. ERYTHROMYCIN [Concomitant]
  19. LITHOBID [Concomitant]
  20. RANITIDINE [Concomitant]
  21. WEST-DECON [Concomitant]
  22. ZYRTEC [Concomitant]

REACTIONS (47)
  - Dystonia [None]
  - Extrapyramidal disorder [None]
  - Dyskinesia [None]
  - Tremor [None]
  - Movement disorder [None]
  - Muscle spasms [None]
  - Paraesthesia [None]
  - Attention deficit/hyperactivity disorder [None]
  - Hyperlipidaemia [None]
  - Insomnia [None]
  - Hypoaesthesia [None]
  - Diplopia [None]
  - Headache [None]
  - Musculoskeletal stiffness [None]
  - Diarrhoea [None]
  - Hypokalaemia [None]
  - Torticollis [None]
  - Vitamin D deficiency [None]
  - Hypothyroidism [None]
  - Rash papular [None]
  - Folliculitis [None]
  - Tinnitus [None]
  - Arthralgia [None]
  - Neck pain [None]
  - Vision blurred [None]
  - Pain in extremity [None]
  - Amnesia [None]
  - Rash pustular [None]
  - Back pain [None]
  - Mass [None]
  - Anxiety [None]
  - Caesarean section [None]
  - Economic problem [None]
  - Myalgia [None]
  - Migraine [None]
  - Joint injury [None]
  - Soft tissue disorder [None]
  - Exostosis [None]
  - Scab [None]
  - Menstrual disorder [None]
  - Skin lesion [None]
  - Head injury [None]
  - Gastrooesophageal reflux disease [None]
  - Fatigue [None]
  - Discomfort [None]
  - Tearfulness [None]
  - Pregnancy [None]
